FAERS Safety Report 24685374 (Version 1)
Quarter: 2024Q4

REPORT INFORMATION
  Report Type: Spontaneous
  Country: JP (occurrence: JP)
  Receive Date: 20241202
  Receipt Date: 20241202
  Transmission Date: 20250115
  Serious: Yes (Hospitalization, Other)
  Sender: ASTELLAS
  Company Number: JP-ASTELLAS-2024-AER-020702

PATIENT
  Sex: Male
  Weight: 2 kg

DRUGS (8)
  1. TACROLIMUS [Suspect]
     Active Substance: TACROLIMUS
     Indication: Immunosuppressant drug therapy
     Route: 064
  2. TACROLIMUS [Suspect]
     Active Substance: TACROLIMUS
     Route: 064
  3. METHYLPREDNISOLONE [Concomitant]
     Active Substance: METHYLPREDNISOLONE
     Indication: Blood creatinine increased
     Route: 064
  4. METHYLPREDNISOLONE [Concomitant]
     Active Substance: METHYLPREDNISOLONE
     Indication: Albumin urine present
  5. AZATHIOPRINE [Concomitant]
     Active Substance: AZATHIOPRINE
     Indication: Immunosuppressant drug therapy
     Route: 064
  6. METHYLDOPA [Concomitant]
     Active Substance: METHYLDOPA
     Indication: Product used for unknown indication
     Route: 064
  7. NIFEDIPINE [Concomitant]
     Active Substance: NIFEDIPINE
     Indication: Blood pressure increased
     Route: 064
  8. NIFEDIPINE [Concomitant]
     Active Substance: NIFEDIPINE
     Route: 064

REACTIONS (3)
  - Premature baby [Unknown]
  - Low birth weight baby [Unknown]
  - Foetal exposure during pregnancy [Unknown]
